FAERS Safety Report 9880899 (Version 1)
Quarter: 2014Q1

REPORT INFORMATION
  Report Type: Spontaneous
  Country: US (occurrence: None)
  Receive Date: 20140206
  Receipt Date: 20140206
  Transmission Date: 20141002
  Serious: Yes (Other)
  Sender: FDA-Public Use
  Company Number: None

PATIENT
  Age: 53 Year
  Sex: 0
  Weight: 70 kg

DRUGS (1)
  1. IOPAMIDOL [Suspect]
     Indication: COMPUTERISED TOMOGRAM

REACTIONS (4)
  - Flushing [None]
  - Pruritus [None]
  - Throat irritation [None]
  - Documented hypersensitivity to administered drug [None]
